FAERS Safety Report 6858229-9 (Version None)
Quarter: 2010Q3

REPORT INFORMATION
  Report Type: 
  Country: None (occurrence: None)
  Receive Date: 20100719
  Receipt Date: 20080215
  Transmission Date: 20110219
  Serious: No
  Sender: FDA-Public Use
  Company Number: US-PFIZER INC-2008012190

PATIENT
  Sex: Female
  Weight: 79.5 kg

DRUGS (4)
  1. CHANTIX [Suspect]
     Indication: SMOKING CESSATION THERAPY
     Dates: start: 20080101, end: 20080101
  2. SYNTHROID [Concomitant]
  3. ZYRTEC [Concomitant]
  4. TOPAMAX [Concomitant]

REACTIONS (8)
  - AMNESIA [None]
  - FEAR [None]
  - HEADACHE [None]
  - MEMORY IMPAIRMENT [None]
  - NASOPHARYNGITIS [None]
  - NERVOUSNESS [None]
  - PANIC REACTION [None]
  - SINUSITIS [None]
